FAERS Safety Report 5929702-2 (Version None)
Quarter: 2008Q4

REPORT INFORMATION
  Report Type: 
  Country: None (occurrence: None)
  Receive Date: 20081024
  Receipt Date: 20081014
  Transmission Date: 20090506
  Serious: Yes (Other)
  Sender: FDA-Public Use
  Company Number: US-BAYER-200814091BCC

PATIENT
  Age: 88 Year
  Sex: Male
  Weight: 82 kg

DRUGS (4)
  1. ASPIRIN [Suspect]
     Indication: PYREXIA
  2. MILK OF MAGNESIA TAB [Concomitant]
  3. CIPRO [Concomitant]
     Dates: start: 20081014
  4. FLOMAX [Concomitant]
     Dates: start: 20081014

REACTIONS (1)
  - HAEMATOCHEZIA [None]
